FAERS Safety Report 7896530-0 (Version None)
Quarter: 2011Q4

REPORT INFORMATION
  Report Type: 
  Country: None (occurrence: None)
  Receive Date: 20111106
  Receipt Date: 20111027
  Transmission Date: 20120403
  Serious: No
  Sender: FDA-Public Use
  Company Number: US-AMGEN-USASP2011043421

PATIENT
  Age: 63 Year
  Sex: Female

DRUGS (2)
  1. ENBREL [Suspect]
     Indication: RHEUMATOID ARTHRITIS
     Dosage: 25 MG, 2 TIMES/WK
     Dates: start: 20000223, end: 20100811
  2. REMICADE [Concomitant]
     Dosage: UNK

REACTIONS (4)
  - RHEUMATOID ARTHRITIS [None]
  - FATIGUE [None]
  - EMOTIONAL DISTRESS [None]
  - DRUG INEFFECTIVE [None]
